FAERS Safety Report 11673281 (Version 2)
Quarter: 2015Q4

REPORT INFORMATION
  Report Type: Report from Study
  Country: US (occurrence: US)
  Receive Date: 20151028
  Receipt Date: 20151113
  Transmission Date: 20160304
  Serious: Yes (Other)
  Sender: FDA-Public Use
  Company Number: US-AMGEN-USASL2015109943

PATIENT
  Age: 57 Year
  Sex: Male

DRUGS (1)
  1. ENBREL [Suspect]
     Active Substance: ETANERCEPT
     Indication: RHEUMATOID ARTHRITIS
     Dosage: 50 MG, QWK
     Route: 065
     Dates: start: 20150922

REACTIONS (11)
  - Oropharyngeal pain [Unknown]
  - Injection site pain [Unknown]
  - Hot flush [Unknown]
  - Pharyngeal disorder [Unknown]
  - Seizure [Unknown]
  - Pharyngeal erythema [Unknown]
  - Arthropathy [Not Recovered/Not Resolved]
  - Dry mouth [Unknown]
  - Sleep disorder [Unknown]
  - Muscle spasms [Unknown]
  - Accident at work [Unknown]

NARRATIVE: CASE EVENT DATE: 2015
